FAERS Safety Report 18703206 (Version 1)
Quarter: 2021Q1

REPORT INFORMATION
  Report Type: Report from Study
  Country: US (occurrence: US)
  Receive Date: 20210105
  Receipt Date: 20210105
  Transmission Date: 20210419
  Serious: No
  Sender: FDA-Public Use
  Company Number: NVSC2021US001146

PATIENT
  Sex: Male

DRUGS (1)
  1. COSENTYX [Suspect]
     Active Substance: SECUKINUMAB
     Indication: PSORIASIS
     Dosage: 300 MG, AT WEEKS 0,1,2,3,AND 4 AND 2 PENS (300MG) ONCE EVERY 4 WEEKS
     Route: 058

REACTIONS (1)
  - Incorrect dose administered [Unknown]
